FAERS Safety Report 6437554-X (Version None)
Quarter: 2009Q4

REPORT INFORMATION
  Report Type: 
  Country: None (occurrence: None)
  Receive Date: 20091112
  Receipt Date: 20091013
  Transmission Date: 20100525
  Serious: No
  Sender: FDA-Public Use
  Company Number: US-BAYER-200915589BCC

PATIENT
  Age: 63 Year
  Sex: Male
  Weight: 98 kg

DRUGS (5)
  1. ALEVE [Suspect]
     Indication: BACK PAIN
     Dosage: UNIT DOSE: 220 MG
     Route: 048
     Dates: start: 20091010, end: 20091010
  2. ALEVE [Suspect]
     Dosage: TOTAL DAILY DOSE: 220 MG  UNIT DOSE: 220 MG
     Route: 048
     Dates: start: 20091011
  3. POTASSIUM CITRATE [Concomitant]
     Route: 065
  4. DICYCLOMINE [Concomitant]
     Route: 065
  5. NEXIUM [Concomitant]
     Route: 065

REACTIONS (3)
  - INSOMNIA [None]
  - PRURITUS GENERALISED [None]
  - URTICARIA [None]
